FAERS Safety Report 5062785-3 (Version None)
Quarter: 2006Q3

REPORT INFORMATION
  Report Type: 
  Country: None (occurrence: None)
  Receive Date: 20060724
  Receipt Date: 20060712
  Transmission Date: 20061208
  Serious: Yes (Hospitalization)
  Sender: FDA-Public Use
  Company Number: 2006087372

PATIENT
  Age: 85 Year
  Sex: Female

DRUGS (6)
  1. ATARAX [Suspect]
     Indication: DRUG USE FOR UNKNOWN INDICATION
     Dosage: 10MG (DAILY)
     Dates: end: 20050918
  2. PRAZEPAM [Suspect]
     Indication: ABNORMAL BEHAVIOUR
     Dosage: DAILY
  3. IMOVANE (ZOPICLONE) [Suspect]
     Indication: DRUG USE FOR UNKNOWN INDICATION
     Dosage: INTERVAL: EVERY DAY
     Dates: end: 20050918
  4. MIRTAZAPINE [Suspect]
     Indication: DRUG USE FOR UNKNOWN INDICATION
  5. POTASSIUM CHLORIDE [Concomitant]
  6. FUNGIZONE [Concomitant]

REACTIONS (6)
  - BLOOD SODIUM INCREASED [None]
  - DEHYDRATION [None]
  - DISTURBANCE IN ATTENTION [None]
  - RENAL FAILURE [None]
  - SOMNOLENCE [None]
  - URINARY TRACT INFECTION [None]
